FAERS Safety Report 4843560-9 (Version None)
Quarter: 2005Q4

REPORT INFORMATION
  Report Type: 
  Country: None (occurrence: None)
  Receive Date: 20051125
  Receipt Date: 20051107
  Transmission Date: 20060501
  Serious: Yes (Other)
  Sender: FDA-Public Use
  Company Number: US200511000055

PATIENT
  Sex: Female

DRUGS (5)
  1. CYMBALTA [Suspect]
     Dosage: 30 MG
     Dates: start: 20051003, end: 20051005
  2. DIOVAN ^CIBA-GEIGY^ (VALSARTAN) [Concomitant]
  3. NEURONTIN [Concomitant]
  4. GABAPENTIN [Concomitant]
  5. NORVASC/GRC/(AMLODIPINE) [Concomitant]

REACTIONS (8)
  - BLOOD PRESSURE INCREASED [None]
  - DIARRHOEA [None]
  - DIZZINESS [None]
  - HEADACHE [None]
  - SHOULDER PAIN [None]
  - SOMNOLENCE [None]
  - TINNITUS [None]
  - VISUAL DISTURBANCE [None]
